FAERS Safety Report 11807110 (Version 1)
Quarter: 2015Q4

REPORT INFORMATION
  Report Type: Spontaneous
  Country: US (occurrence: US)
  Receive Date: 20151207
  Receipt Date: 20151207
  Transmission Date: 20160305
  Serious: No
  Sender: FDA-Public Use
  Company Number: US-ENDO PHARMACEUTICALS INC.-201411071

PATIENT
  Sex: Male
  Weight: 100.33 kg

DRUGS (2)
  1. INSULIN [Concomitant]
     Active Substance: INSULIN NOS
  2. TESTIM [Suspect]
     Active Substance: TESTOSTERONE
     Route: 061
     Dates: start: 20141105

REACTIONS (1)
  - Libido decreased [Unknown]
